FAERS Safety Report 10612071 (Version 3)
Quarter: 2015Q1

REPORT INFORMATION
  Report Type: Report from Study
  Country: US (occurrence: US)
  Receive Date: 20141127
  Receipt Date: 20150219
  Transmission Date: 20150720
  Serious: Yes (Death, Hospitalization)
  Sender: FDA-Public Use
  Company Number: US-EXELIXIS-CABO-14004980

PATIENT
  Age: 53 Year
  Sex: Male

DRUGS (10)
  1. PREVACID [Concomitant]
     Active Substance: LANSOPRAZOLE
  2. CABOZANTINIB [Suspect]
     Active Substance: CABOZANTINIB
     Indication: METASTATIC OCULAR MELANOMA
     Dosage: 60 MG, QD
     Route: 048
     Dates: start: 20141030, end: 20141101
  3. ALLOPURINOL. [Concomitant]
     Active Substance: ALLOPURINOL
  4. MEGESTROL [Concomitant]
     Active Substance: MEGESTROL
  5. TRAMETINIB [Concomitant]
     Active Substance: TRAMETINIB
  6. VITAMIN B COMPLEX [Concomitant]
     Active Substance: CYANOCOBALAMIN\DEXPANTHENOL\NIACINAMIDE\PYRIDOXINE HYDROCHLORIDE\RIBOFLAVIN 5^-PHOSPHATE SODIUM\THIAMINE HYDROCHLORIDE\VITAMIN B COMPLEX
  7. FLECAINIDE [Concomitant]
     Active Substance: FLECAINIDE
  8. ASPIRIN. [Concomitant]
     Active Substance: ASPIRIN
  9. CHOLECALCIFEROL [Concomitant]
     Active Substance: CHOLECALCIFEROL
  10. MULTIVITAMINS [Concomitant]
     Active Substance: VITAMINS

REACTIONS (7)
  - Confusional state [Unknown]
  - Hypersomnia [Unknown]
  - Hepatic encephalopathy [Fatal]
  - Hepatic enzyme increased [Unknown]
  - Malignant neoplasm progression [Fatal]
  - Asthenia [Unknown]
  - Off label use [Unknown]

NARRATIVE: CASE EVENT DATE: 20141101
